FAERS Safety Report 12305974 (Version 23)
Quarter: 2018Q3

REPORT INFORMATION
  Report Type: Report from Study
  Country: DE (occurrence: DE)
  Receive Date: 20160426
  Receipt Date: 20180723
  Transmission Date: 20181010
  Serious: Yes (Hospitalization, Other)
  Sender: FDA-Public Use
  Company Number: DE-SA-2016SA066616

PATIENT
  Age: 43 Year
  Sex: Female
  Weight: 74 kg

DRUGS (29)
  1. ACICLOVIR [Concomitant]
     Active Substance: ACYCLOVIR
     Indication: PROPHYLAXIS
     Dosage: 200 MG
     Route: 048
     Dates: start: 20170201, end: 20170227
  2. MAGNESIUM [Concomitant]
     Active Substance: MAGNESIUM
     Dosage: 375 MG,BID
     Route: 048
     Dates: start: 20120101, end: 2017
  3. RIBOFLAVIN [Concomitant]
     Active Substance: RIBOFLAVIN
     Dosage: UNK UNK,UNK
     Route: 065
  4. CEFUROXIME SODIUM. [Concomitant]
     Active Substance: CEFUROXIME SODIUM
     Dosage: 500 MG,BID
     Route: 048
     Dates: start: 20161216, end: 20161221
  5. AERIUS [DESLORATADINE] [Concomitant]
     Dosage: 5 MG,BID
     Route: 048
     Dates: start: 20170201, end: 20170207
  6. DEKRISTOL [Concomitant]
     Active Substance: CHOLECALCIFEROL
     Indication: VITAMIN D DEFICIENCY
     Dosage: 20.000 IU, QW
     Route: 048
     Dates: start: 2013
  7. DEKRISTOL [Concomitant]
     Active Substance: CHOLECALCIFEROL
     Dosage: 20000 IU,QW
     Route: 048
     Dates: start: 20140101
  8. PYRIDOXINE HYDROCHLORIDE. [Concomitant]
     Active Substance: PYRIDOXINE HYDROCHLORIDE
     Dosage: UNK UNK,UNK
     Route: 065
  9. URBASON [METHYLPREDNISOLONE] [Concomitant]
     Dosage: 1000 UNK
     Route: 042
     Dates: start: 20161229, end: 20161231
  10. INFLUVAC [Concomitant]
     Active Substance: INFLUENZA VIRUS VACCINE TRIVALENT TYPE A+B
     Indication: PROPHYLAXIS
     Dosage: 0.5 ML, 1X
     Route: 030
     Dates: start: 20161214, end: 20161214
  11. RANITIDINE. [Concomitant]
     Active Substance: RANITIDINE
     Dosage: 300 MG,BID
     Route: 048
     Dates: start: 20170201, end: 20170207
  12. MAGNESIUM [Concomitant]
     Active Substance: MAGNESIUM
     Indication: MUSCLE SPASMS
     Dosage: 100 MG,BID
     Route: 048
  13. BACLOFEN. [Concomitant]
     Active Substance: BACLOFEN
     Dosage: 10 MG,UNK
     Route: 048
     Dates: start: 20100101
  14. CEFUROXIME SODIUM. [Concomitant]
     Active Substance: CEFUROXIME SODIUM
     Dosage: 500 MG,BID
     Route: 048
     Dates: start: 20170411, end: 20170411
  15. RANITIDINE. [Concomitant]
     Active Substance: RANITIDINE
     Indication: PREMEDICATION
     Dosage: 300 MG,1X
     Route: 048
     Dates: start: 20170131, end: 20170131
  16. ALEMTUZUMAB [Suspect]
     Active Substance: ALEMTUZUMAB
     Dosage: 12 MG,UNK
     Route: 041
     Dates: start: 20150218, end: 20150220
  17. MAGNESIUM [Concomitant]
     Active Substance: MAGNESIUM
     Dosage: 375 MG,BID
     Route: 048
     Dates: start: 2010
  18. BACLOFEN. [Concomitant]
     Active Substance: BACLOFEN
     Indication: MUSCLE SPASTICITY
     Dosage: 10 MG,UNK
     Route: 048
     Dates: start: 2012
  19. PANTOPRAZOL [PANTOPRAZOLE] [Concomitant]
     Indication: PROPHYLAXIS
     Dosage: 2 DF
     Route: 048
     Dates: start: 20170411, end: 20170417
  20. ALEMTUZUMAB [Suspect]
     Active Substance: ALEMTUZUMAB
     Indication: MULTIPLE SCLEROSIS
     Dosage: 12 MG,UNK
     Route: 041
     Dates: start: 20140217, end: 20140221
  21. ALEMTUZUMAB [Suspect]
     Active Substance: ALEMTUZUMAB
     Dosage: 12 MG,UNK
     Route: 041
     Dates: start: 20170201, end: 20170203
  22. ACICLOVIR [Concomitant]
     Active Substance: ACYCLOVIR
     Indication: PROPHYLAXIS
     Dosage: UNK UNK,UNK
     Route: 065
  23. PANTOTHENIC ACID [Concomitant]
     Active Substance: PANTOTHENIC ACID
     Dosage: UNK UNK,UNK
     Route: 065
  24. THIAMINE HYDROCHLORIDE. [Concomitant]
     Active Substance: THIAMINE HYDROCHLORIDE
     Dosage: UNK UNK,UNK
     Route: 065
  25. URBASON [METHYLPREDNISOLONE] [Concomitant]
     Indication: PREMEDICATION
     Dosage: 1000 MG,QD
     Route: 042
     Dates: start: 20170201, end: 20170203
  26. PARACETAMOL [Concomitant]
     Active Substance: ACETAMINOPHEN
     Indication: PREMEDICATION
     Dosage: 1000 MG,QD
     Route: 048
     Dates: start: 20170201, end: 20170203
  27. AERIUS [DESLORATADINE] [Concomitant]
     Indication: PREMEDICATION
     Dosage: 5 MG,UNK
     Route: 048
     Dates: start: 20170131, end: 20170131
  28. ACICLOVIR [Concomitant]
     Active Substance: ACYCLOVIR
     Dosage: 200 MG, 1X
     Route: 048
     Dates: start: 20170131, end: 20170131
  29. BACLOFEN. [Concomitant]
     Active Substance: BACLOFEN
     Dosage: 5 MG,BID
     Route: 048
     Dates: start: 2010

REACTIONS (15)
  - Thrombocytopenia [Recovered/Resolved]
  - Immune thrombocytopenic purpura [Not Recovered/Not Resolved]
  - Colitis [Not Recovered/Not Resolved]
  - Nasopharyngitis [Not Recovered/Not Resolved]
  - Multiple sclerosis relapse [Recovering/Resolving]
  - Abdominal pain [Not Recovered/Not Resolved]
  - Cough [Recovered/Resolved]
  - Foot fracture [Not Recovered/Not Resolved]
  - Gait disturbance [Recovering/Resolving]
  - Hypothyroidism [Not Recovered/Not Resolved]
  - Influenza [Recovered/Resolved]
  - Sneezing [Recovered/Resolved]
  - Dyspnoea [Recovered/Resolved]
  - Periodontitis [Recovered/Resolved]
  - Asthenia [Recovering/Resolving]

NARRATIVE: CASE EVENT DATE: 20150219
